FAERS Safety Report 14373343 (Version 1)
Quarter: 2018Q1

REPORT INFORMATION
  Report Type: Report from Study
  Country: DE (occurrence: DE)
  Receive Date: 20180110
  Receipt Date: 20180110
  Transmission Date: 20180509
  Serious: Yes (Death, Hospitalization)
  Sender: FDA-Public Use
  Company Number: DE-ELI_LILLY_AND_COMPANY-DE201801002555

PATIENT
  Age: 68 Year
  Sex: Male

DRUGS (2)
  1. CORTISONE [Concomitant]
     Active Substance: CORTISONE\HYDROCORTISONE
     Indication: PRODUCT USED FOR UNKNOWN INDICATION
     Dosage: UNK, UNKNOWN
  2. TERIPARATIDE [Suspect]
     Active Substance: TERIPARATIDE
     Indication: OSTEOPOROSIS
     Dosage: UNK, DAILY
     Route: 058
     Dates: start: 20171129, end: 20180104

REACTIONS (6)
  - Renal function test abnormal [Unknown]
  - Lung disorder [Unknown]
  - Nasopharyngitis [Unknown]
  - Liver function test abnormal [Unknown]
  - Pulmonary fibrosis [Fatal]
  - Blood test abnormal [Unknown]
